FAERS Safety Report 25513184 (Version 1)
Quarter: 2025Q3

REPORT INFORMATION
  Report Type: Spontaneous
  Country: US (occurrence: US)
  Receive Date: 20250703
  Receipt Date: 20250703
  Transmission Date: 20251020
  Serious: No
  Sender: RADIUS PHARM
  Company Number: US-RADIUS HEALTH INC.-2024US008587

PATIENT
  Sex: Female

DRUGS (2)
  1. TYMLOS [Suspect]
     Active Substance: ABALOPARATIDE
     Indication: Bone density abnormal
     Route: 058
     Dates: start: 20241001
  2. NAPROXEN [Concomitant]
     Active Substance: NAPROXEN
     Indication: Product used for unknown indication
     Route: 065

REACTIONS (11)
  - Loss of personal independence in daily activities [Unknown]
  - Dizziness [Recovered/Resolved]
  - Headache [Unknown]
  - Product use complaint [Unknown]
  - Product storage error [Unknown]
  - Nausea [Recovered/Resolved]
  - Injection site pain [Recovered/Resolved]
  - Injection site swelling [Recovered/Resolved]
  - Therapy interrupted [Unknown]
  - Product administered to patient of inappropriate age [Unknown]
  - Injection site inflammation [Not Recovered/Not Resolved]
